FAERS Safety Report 9527617 (Version 1)
Quarter: 2013Q1

REPORT INFORMATION
  Report Type: Spontaneous
  Country: US (occurrence: None)
  Receive Date: 20130313
  Receipt Date: 20130313
  Transmission Date: 20140127
  Serious: Yes (Other)
  Sender: FDA-Public Use
  Company Number: 1000039106

PATIENT
  Age: 46 Year
  Sex: Female
  Weight: 77 kg

DRUGS (8)
  1. SAVELLA [Suspect]
     Indication: FIBROMYALGIA
     Dosage: 6.25 MG, 1 IN 1 D
     Route: 048
     Dates: start: 20120921, end: 20120922
  2. UNSPECIFIED INGREDIENTS [Suspect]
     Indication: INTERVERTEBRAL DISC PROTRUSION
  3. VALIUM [Concomitant]
  4. HYDROCODONE [Concomitant]
  5. LORTAB [Concomitant]
  6. LEXAPRO [Concomitant]
  7. TRAMADOL [Concomitant]
  8. LORAZEPAM [Concomitant]

REACTIONS (1)
  - Heart rate increased [None]
